FAERS Safety Report 18226678 (Version 2)
Quarter: 2020Q3

REPORT INFORMATION
  Report Type: Other
  Country: US (occurrence: US)
  Receive Date: 20200903
  Receipt Date: 20200907
  Transmission Date: 20201103
  Serious: No
  Sender: FDA-Public Use
  Company Number: US-ROCHE-2658908

PATIENT
  Age: 48 Year
  Sex: Female

DRUGS (1)
  1. OCREVUS [Suspect]
     Active Substance: OCRELIZUMAB
     Indication: MULTIPLE SCLEROSIS
     Dosage: 300 MG DAYS 1 AND 15, 600 MG EVERY 6 MONTHS
     Route: 065
     Dates: start: 20200211

REACTIONS (7)
  - Mycobacterium tuberculosis complex test positive [Unknown]
  - Pruritus [Unknown]
  - Illness [Unknown]
  - COVID-19 [Unknown]
  - Respiratory disorder [Unknown]
  - Constipation [Unknown]
  - Gastric disorder [Unknown]

NARRATIVE: CASE EVENT DATE: 20200723
